FAERS Safety Report 6098751-9 (Version None)
Quarter: 2009Q1

REPORT INFORMATION
  Report Type: 
  Country: None (occurrence: None)
  Receive Date: 20090302
  Receipt Date: 20090210
  Transmission Date: 20090719
  Serious: Yes (Hospitalization)
  Sender: FDA-Public Use
  Company Number: US-PFIZER INC-2009175676

PATIENT
  Sex: Female

DRUGS (14)
  1. MARAVIROC [Suspect]
     Indication: HIV INFECTION
     Dosage: 100 MG, 2X/DAY
     Route: 048
     Dates: start: 20080630, end: 20081106
  2. ZYRTEC [Suspect]
     Indication: RHINITIS ALLERGIC
  3. RALTEGRAVIR [Suspect]
     Dosage: 400 MG, 2X/DAY
     Route: 048
     Dates: start: 20080630, end: 20081106
  4. ANTIVIRALS FOR SYSTEMIC USE [Suspect]
     Dosage: 600 MG, 2X/DAY
     Route: 048
     Dates: start: 20080630, end: 20081106
  5. RITONAVIR [Suspect]
     Dosage: 100 MG, 2X/DAY
     Route: 048
     Dates: start: 20080630, end: 20081106
  6. DEXTROMETHORPHAN W/GUAIFENESIN/PSEUDOEPHEDRIN [Suspect]
  7. VALGANCICLOVIR [Concomitant]
     Route: 048
  8. SEPTRA DS [Concomitant]
     Route: 048
  9. MULTI-VITAMINS [Concomitant]
     Route: 048
  10. ZITHROMAX [Concomitant]
     Route: 048
  11. PEPCID [Concomitant]
     Route: 048
  12. PULMICORT-100 [Concomitant]
     Route: 048
  13. ALBUTEROL [Concomitant]
     Route: 048
  14. GUAIFENESIN W/DEXTROMETHORPHAN [Concomitant]
     Route: 048

REACTIONS (7)
  - DEHYDRATION [None]
  - DIZZINESS [None]
  - HEADACHE [None]
  - MYALGIA [None]
  - PYREXIA [None]
  - THROMBOCYTOPENIA [None]
  - VOMITING [None]
